FAERS Safety Report 9698340 (Version 2)
Quarter: 2013Q4

REPORT INFORMATION
  Report Type: Spontaneous
  Country: US (occurrence: US)
  Receive Date: 20131120
  Receipt Date: 20131120
  Transmission Date: 20140711
  Serious: Yes (Hospitalization)
  Sender: FDA-Public Use
  Company Number: US-GILEAD-2013-0085759

PATIENT
  Age: 56 Year
  Sex: Female

DRUGS (8)
  1. LETAIRIS [Suspect]
     Indication: PRODUCT USED FOR UNKNOWN INDICATION
     Dosage: 10 MG, QD
     Dates: start: 20130904, end: 20131111
  2. LETAIRIS [Suspect]
     Dates: start: 20130904, end: 20131111
  3. VENTOLIN                           /00139501/ [Concomitant]
  4. PERCOCET                           /00446701/ [Concomitant]
  5. OXYCONTIN [Concomitant]
  6. FUROSEMIDE [Concomitant]
  7. ADVAIR [Concomitant]
  8. ASPIRIN [Concomitant]

REACTIONS (3)
  - Fluid retention [Recovered/Resolved]
  - Dyspnoea [Recovered/Resolved]
  - Oedema peripheral [Recovered/Resolved]
